FAERS Safety Report 10497600 (Version 3)
Quarter: 2015Q2

REPORT INFORMATION
  Report Type: Spontaneous
  Country: DK (occurrence: None)
  Receive Date: 20141002
  Receipt Date: 20150410
  Transmission Date: 20150821
  Serious: Yes (Hospitalization)
  Sender: FDA-Public Use
  Company Number: E2B_7324088

PATIENT
  Age: 47 Year
  Sex: Female
  Weight: 62 kg

DRUGS (1)
  1. EUTHYROX [Suspect]
     Active Substance: LEVOTHYROXINE SODIUM
     Indication: MYXOEDEMA
     Route: 048
     Dates: start: 20110201

REACTIONS (10)
  - Arthralgia [None]
  - Heart rate increased [None]
  - Alopecia [None]
  - Weight decreased [None]
  - Abdominal pain upper [None]
  - Myalgia [None]
  - Disturbance in attention [None]
  - Palpitations [None]
  - Memory impairment [None]
  - Diarrhoea [None]

NARRATIVE: CASE EVENT DATE: 20140401
